FAERS Safety Report 9245205 (Version 1)
Quarter: 2013Q1

REPORT INFORMATION
  Report Type: Spontaneous
  Country: US (occurrence: None)
  Receive Date: 20121130
  Receipt Date: 20121130
  Transmission Date: 20140127
  Serious: Yes (Hospitalization)
  Sender: FDA-Public Use
  Company Number: 359681

PATIENT
  Age: 35 Year
  Sex: Male
  Weight: 72.6 kg

DRUGS (2)
  1. NOVOLOG [Suspect]
     Indication: TYPE 1 DIABETES MELLITUS
     Dosage: SLIDING SCALE, SUBCUTANEOUS
     Dates: start: 2002
  2. LANTUS (INSULIN GLARGINE) [Suspect]
     Indication: TYPE 1 DIABETES MELLITUS
     Dosage: 42 U, QD IN MORNING, SUBCUTANEOUS

REACTIONS (1)
  - Hypoglycaemic unconsciousness [None]
